FAERS Safety Report 6756294-0 (Version None)
Quarter: 2010Q2

REPORT INFORMATION
  Report Type: 
  Country: None (occurrence: None)
  Receive Date: 20100604
  Receipt Date: 20100525
  Transmission Date: 20101027
  Serious: Yes (Other)
  Sender: FDA-Public Use
  Company Number: EC-ROCHE-702788

PATIENT
  Sex: Female
  Weight: 65.8 kg

DRUGS (4)
  1. ACTEMRA [Suspect]
     Indication: RHEUMATOID ARTHRITIS
     Dosage: 8 MG/KG TOTAL MONTHLY DOSE
     Route: 042
     Dates: start: 20091013
  2. HYDROCORTISONE [Concomitant]
     Indication: RHEUMATOID ARTHRITIS
     Dosage: FREQUENCY: QD
     Route: 048
     Dates: start: 20091001
  3. METHOTREXATE [Concomitant]
     Indication: RHEUMATOID ARTHRITIS
     Dosage: FREQUENCY: WEEKLY, DRUG REPORTED: METOTREXATE.
     Route: 048
     Dates: start: 20091001
  4. MELOXICAM [Concomitant]
     Indication: RHEUMATOID ARTHRITIS
     Dosage: FREQUENCY: QD
     Route: 048
     Dates: start: 20091001

REACTIONS (2)
  - TOOTH ABSCESS [None]
  - TOOTHACHE [None]
